FAERS Safety Report 7896431-8 (Version None)
Quarter: 2011Q4

REPORT INFORMATION
  Report Type: 
  Country: None (occurrence: None)
  Receive Date: 20111106
  Receipt Date: 20110909
  Transmission Date: 20120403
  Serious: No
  Sender: FDA-Public Use
  Company Number: US-AMGEN-USASP2011046392

PATIENT
  Sex: Female
  Weight: 158 kg

DRUGS (6)
  1. ENBREL [Suspect]
     Indication: PRODUCT USED FOR UNKNOWN INDICATION
     Dosage: 50 MG, QWK
  2. ASPIRIN [Concomitant]
     Dosage: 81 MG, UNK
  3. MULTIVITAMIN                       /00097801/ [Concomitant]
  4. ADVAIR DISKUS 100/50 [Concomitant]
     Dosage: 100 UNK, UNK
  5. SYNTHROID [Concomitant]
     Dosage: 100 MUG, UNK
  6. PRESERVISION EYE VITAMIN AND MINERAL SUPPL. [Concomitant]

REACTIONS (1)
  - ARTHRALGIA [None]
